FAERS Safety Report 8206965-4 (Version None)
Quarter: 2012Q1

REPORT INFORMATION
  Report Type: 
  Country: None (occurrence: None)
  Receive Date: 20120312
  Receipt Date: 20120209
  Transmission Date: 20120608
  Serious: Yes (Hospitalization)
  Sender: FDA-Public Use
  Company Number: ESP-CLT-2012002

PATIENT
  Age: 3 Year
  Sex: Female

DRUGS (5)
  1. CYSTADANE [Suspect]
     Indication: HOMOCYSTINURIA
     Dosage: 1 250 MG EVERY DAY, 3,600 G EVERY DAY, 5, 400 DAY, ORAL
     Route: 048
     Dates: start: 20090218
  2. CYSTADANE [Suspect]
     Indication: HOMOCYSTINURIA
     Dosage: 1 250 MG EVERY DAY, 3,600 G EVERY DAY, 5, 400 DAY, ORAL
     Route: 048
     Dates: start: 20101115
  3. CYSTADANE [Suspect]
     Indication: HOMOCYSTINURIA
     Dosage: 1 250 MG EVERY DAY, 3,600 G EVERY DAY, 5, 400 DAY, ORAL
     Route: 048
     Dates: start: 20080718
  4. LEUCOVORIN CALCIUM [Concomitant]
  5. VITAMIN B-12 [Concomitant]

REACTIONS (5)
  - PARTIAL SEIZURES [None]
  - ABNORMAL BEHAVIOUR [None]
  - ATAXIA [None]
  - TOXICITY TO VARIOUS AGENTS [None]
  - GRAND MAL CONVULSION [None]
